FAERS Safety Report 11230256 (Version 1)
Quarter: 2015Q3

REPORT INFORMATION
  Report Type: Spontaneous
  Country: US (occurrence: US)
  Receive Date: 20150701
  Receipt Date: 20150701
  Transmission Date: 20151125
  Serious: No
  Sender: FDA-Public Use
  Company Number: US-BRISTOL-MYERS SQUIBB COMPANY-BMS-2015-042800

PATIENT
  Age: 8 Year
  Sex: Male

DRUGS (1)
  1. ABILIFY [Suspect]
     Active Substance: ARIPIPRAZOLE
     Indication: AUTISM
     Dosage: 25 MG, BID; ORAL SOLUTION 1 MG/ML; 15MG IN THE MORNING AND 10MG IN THE EVENING
     Route: 048

REACTIONS (1)
  - Off label use [Not Recovered/Not Resolved]
